FAERS Safety Report 26099745 (Version 1)
Quarter: 2025Q4

REPORT INFORMATION
  Report Type: Spontaneous
  Country: MY (occurrence: CN)
  Receive Date: 20251128
  Receipt Date: 20251128
  Transmission Date: 20260117
  Serious: Yes (Life-Threatening, Hospitalization, Other)
  Sender: ALKEM
  Company Number: MY-ALKEM LABORATORIES LIMITED-DE-ALKEM-2025-04677

PATIENT
  Age: 31 Year
  Sex: Male

DRUGS (2)
  1. OLANZAPINE [Suspect]
     Active Substance: OLANZAPINE
     Indication: Schizophrenia
     Dosage: 5 MILLIGRAM, QD (DAILY) (TABLET)
     Route: 065
  2. OLANZAPINE [Suspect]
     Active Substance: OLANZAPINE
     Dosage: 10 MILLIGRAM, QD (DAILY) (TABLET)
     Route: 065

REACTIONS (2)
  - Acute kidney injury [Recovered/Resolved]
  - Neuroleptic malignant syndrome [Recovering/Resolving]
